FAERS Safety Report 5767045-0 (Version None)
Quarter: 2008Q2

REPORT INFORMATION
  Report Type: 
  Country: None (occurrence: None)
  Receive Date: 20080606
  Receipt Date: 20080526
  Transmission Date: 20081010
  Serious: Yes (Hospitalization, Disabling)
  Sender: FDA-Public Use
  Company Number: 2008-01843

PATIENT
  Age: 74 Year
  Sex: Female

DRUGS (3)
  1. VELCADE [Suspect]
     Indication: MULTIPLE MYELOMA
     Dates: start: 20020101, end: 20070101
  2. THALIDOMIDE(THALIDOMIDE) [Suspect]
     Indication: MULTIPLE MYELOMA
     Dates: start: 20030301, end: 20050801
  3. REVLIMID [Suspect]
     Indication: MULTIPLE MYELOMA
     Dates: start: 20071218, end: 20080206

REACTIONS (10)
  - ACUTE PULMONARY OEDEMA [None]
  - CARDIAC FAILURE [None]
  - DIAPHRAGMATIC DISORDER [None]
  - HYPERCALCAEMIA OF MALIGNANCY [None]
  - NEUROPATHY PERIPHERAL [None]
  - NEUTROPENIA [None]
  - RESPIRATORY FAILURE [None]
  - SENSORY LOSS [None]
  - THROMBOCYTOPENIA [None]
  - WOUND [None]
